FAERS Safety Report 5157770-7 (Version None)
Quarter: 2006Q4

REPORT INFORMATION
  Report Type: 
  Country: None (occurrence: None)
  Receive Date: 20061116
  Receipt Date: 20061106
  Transmission Date: 20070319
  Serious: Yes (Hospitalization)
  Sender: FDA-Public Use
  Company Number: 230865

PATIENT
  Age: 56 Year
  Sex: Female

DRUGS (12)
  1. AVASTIN [Suspect]
     Indication: OVARIAN CANCER
     Dosage: 15MG/M2, Q3W, INTRAVENOUS
     Route: 042
     Dates: start: 20060907
  2. OXALIPLATIN [Suspect]
     Indication: OVARIAN CANCER
     Dosage: 85 MG/M2, Q3W, INTRAVENOUS
     Route: 042
     Dates: start: 20060907
  3. DOCETAXEL (DOCETAXEL) [Suspect]
     Indication: OVARIAN CANCER
     Dosage: 75 MG/M2, Q3W, INTRAVENOUS
     Route: 042
     Dates: start: 20060907
  4. PERCOCET [Concomitant]
  5. LANSOPRAZOL (LANSOPRAZOLE) [Concomitant]
  6. FLUOXETINE HCL [Concomitant]
  7. LEVOTHYROXINE SODIUM [Concomitant]
  8. PROCHLORPERAZINE EDISYLATE [Concomitant]
  9. HYDROCHLOROTHIAZIDE [Concomitant]
  10. MILK OF MAGNESIA (MILK OF  MAGNESIA) [Concomitant]
  11. DEXAMETHASON (DEXAMETHASONE) [Concomitant]
  12. GRANISETRON (GRANISETRON HYDROCHLORIDE) [Concomitant]

REACTIONS (16)
  - ABDOMINAL PAIN LOWER [None]
  - ABDOMINAL PAIN UPPER [None]
  - ALANINE AMINOTRANSFERASE INCREASED [None]
  - ASPARTATE AMINOTRANSFERASE INCREASED [None]
  - BLOOD CHLORIDE DECREASED [None]
  - BLOOD SODIUM DECREASED [None]
  - DEHYDRATION [None]
  - DIARRHOEA [None]
  - HAEMATOCRIT DECREASED [None]
  - HAEMOGLOBIN DECREASED [None]
  - NAUSEA [None]
  - NEUTROPHIL COUNT DECREASED [None]
  - RED BLOOD CELL COUNT DECREASED [None]
  - SMALL INTESTINAL OBSTRUCTION [None]
  - VOMITING [None]
  - WHITE BLOOD CELL COUNT DECREASED [None]
